FAERS Safety Report 9287991 (Version 3)
Quarter: 2013Q3

REPORT INFORMATION
  Report Type: Spontaneous
  Country: DK (occurrence: None)
  Receive Date: 20130506
  Receipt Date: 20130702
  Transmission Date: 20140515
  Serious: Yes (Hospitalization, Other)
  Sender: FDA-Public Use
  Company Number: VAL_02501_2013

PATIENT
  Age: 60 Year
  Sex: Male

DRUGS (7)
  1. METOPROLOL [Suspect]
     Indication: HYPERTENSION
     Dosage: 75 MG/KG HS (IN THE EVENING)
     Dates: start: 2008, end: 20130406
  2. EXFORGE HCT [Suspect]
     Indication: HYPERTENSION
     Dosage: (1 DF DAILY/ IN THE MORNING 160MG VAL, 10MG AMLO, 12.5MG HCT (REGIMEN #1))
     Dates: start: 20130406
  3. OTRIVIN [Suspect]
     Indication: NASAL CONGESTION
     Dosage: (DF REGIMEN NASAL)
     Route: 045
  4. OTRIVIN [Suspect]
     Indication: NASOPHARYNGITIS
     Dosage: (DF REGIMEN NASAL)
     Route: 045
  5. SIMVASTATIN [Suspect]
     Indication: BLOOD CHOLESTEROL INCREASED
     Dosage: QHS  (IN THE EVENING) (REGIMEN #1))
  6. LOSARTAN POTASSIUM [Suspect]
     Indication: HYPERTENSION
     Dosage: IN THE MORNING (REGIMEN #1))
  7. ASPIRIN PROTECT [Concomitant]

REACTIONS (18)
  - Palpitations [None]
  - Headache [None]
  - Dizziness [None]
  - Fatigue [None]
  - Visual impairment [None]
  - Myalgia [None]
  - Hypertension [None]
  - Presyncope [None]
  - Disturbance in attention [None]
  - Nausea [None]
  - Non-cardiac chest pain [None]
  - Pain in extremity [None]
  - Hyperhidrosis [None]
  - Peripheral coldness [None]
  - Depression [None]
  - Epistaxis [None]
  - Discomfort [None]
  - Drug effect decreased [None]
